FAERS Safety Report 10081811 (Version 1)
Quarter: 2014Q2

REPORT INFORMATION
  Report Type: Spontaneous
  Country: GB (occurrence: GB)
  Receive Date: 20140416
  Receipt Date: 20140416
  Transmission Date: 20141212
  Serious: Yes (Other)
  Sender: FDA-Public Use
  Company Number: GB-TEVA-473948ISR

PATIENT
  Age: 85 Year
  Sex: Male
  Weight: 90.71 kg

DRUGS (4)
  1. ATORVASTATIN [Suspect]
     Indication: CORONARY ARTERY DISEASE
     Route: 048
     Dates: start: 20140317, end: 20140319
  2. ASPIRIN [Concomitant]
     Dosage: 75 MILLIGRAM DAILY;
  3. RAMIPRIL [Concomitant]
     Dosage: 5 MILLIGRAM DAILY;
  4. ZOTON [Concomitant]
     Dosage: 60 MILLIGRAM DAILY;

REACTIONS (3)
  - Asthenia [Recovering/Resolving]
  - Fatigue [Recovering/Resolving]
  - Product substitution issue [Unknown]
